FAERS Safety Report 7600515-9 (Version None)
Quarter: 2011Q3

REPORT INFORMATION
  Report Type: 
  Country: None (occurrence: None)
  Receive Date: 20110711
  Receipt Date: 20110704
  Transmission Date: 20111222
  Serious: Yes (Death, Other)
  Sender: FDA-Public Use
  Company Number: GB-ROCHE-537549

PATIENT

DRUGS (2)
  1. OXALIPLATIN [Suspect]
     Indication: COLORECTAL CANCER
     Dosage: OVER 2 HOURS GIVEN ON DAY 1 EVERY 3 WEEK CYCLE.
     Route: 042
  2. CAPECITABINE [Suspect]
     Indication: COLORECTAL CANCER
     Dosage: DAYS 1-14 EVERY 3 WEEK CYCLE.
     Route: 048

REACTIONS (18)
  - NAUSEA [None]
  - VOMITING [None]
  - PAIN [None]
  - DIARRHOEA [None]
  - RASH [None]
  - PLATELET COUNT DECREASED [None]
  - VEIN PAIN [None]
  - DECREASED APPETITE [None]
  - ANAEMIA [None]
  - LETHARGY [None]
  - ALOPECIA [None]
  - PALMAR-PLANTAR ERYTHRODYSAESTHESIA SYNDROME [None]
  - WHITE BLOOD CELL COUNT DECREASED [None]
  - DEATH [None]
  - NEUTROPENIA [None]
  - HYPERSENSITIVITY [None]
  - STOMATITIS [None]
  - NEUROPATHY PERIPHERAL [None]
